FAERS Safety Report 9697581 (Version 5)
Quarter: 2014Q1

REPORT INFORMATION
  Report Type: Spontaneous
  Country: JP (occurrence: JP)
  Receive Date: 20131120
  Receipt Date: 20140317
  Transmission Date: 20141002
  Serious: Yes (Hospitalization, Other)
  Sender: FDA-Public Use
  Company Number: JP-ELI_LILLY_AND_COMPANY-JP201311004288

PATIENT
  Age: 76 Year
  Sex: Female
  Weight: 42 kg

DRUGS (9)
  1. FORTEO [Suspect]
     Indication: OSTEOPOROSIS
     Dosage: 20 UG, QD
     Route: 058
     Dates: start: 20130913, end: 20131108
  2. LOXONIN [Concomitant]
     Indication: BACK PAIN
     Dosage: 60 MG, TID
     Route: 048
     Dates: start: 20070921
  3. URSO                               /00465701/ [Concomitant]
     Indication: CIRRHOSIS ALCOHOLIC
     Dosage: 100 MG, TID
     Route: 048
     Dates: start: 20070921
  4. MIYA BM [Concomitant]
     Indication: DYSCHEZIA
     Dosage: UNK
     Route: 048
     Dates: start: 20070921
  5. MYSLEE [Concomitant]
     Indication: INSOMNIA
     Dosage: 10 MG, QD
     Route: 048
     Dates: start: 20070921
  6. DEPAS [Concomitant]
     Indication: INSOMNIA
     Dosage: 0.5 MG, QD
     Route: 048
     Dates: start: 20070921
  7. LANSOPRAZOLE [Concomitant]
     Indication: GASTRIC ULCER
     Dosage: 30 MG, QD
     Route: 048
     Dates: start: 20070921
  8. FENTAS [Concomitant]
     Dosage: 2 MG, QD
     Route: 062
  9. OXINORM [Concomitant]
     Dosage: 10 MG, PRN
     Route: 048

REACTIONS (3)
  - Rectal ulcer haemorrhage [Recovered/Resolved]
  - Metastases to bone [Not Recovered/Not Resolved]
  - Hepatic neoplasm [Not Recovered/Not Resolved]
